FAERS Safety Report 5149221-3 (Version None)
Quarter: 2006Q4

REPORT INFORMATION
  Report Type: 
  Country: None (occurrence: None)
  Receive Date: 20061113
  Receipt Date: 20050915
  Transmission Date: 20070319
  Serious: No
  Sender: FDA-Public Use
  Company Number: US-GLAXOSMITHKLINE-A0574422A

PATIENT
  Age: 68 Year
  Sex: Female

DRUGS (6)
  1. COREG [Suspect]
     Dosage: 12.5MG TWICE PER DAY
     Route: 048
     Dates: start: 20031201
  2. COREG [Suspect]
     Dosage: 6.25MG TWICE PER DAY
     Route: 048
     Dates: start: 20050901
  3. ZESTRIL [Concomitant]
  4. LIPITOR [Concomitant]
  5. COUMADIN [Concomitant]
  6. XANAX [Concomitant]

REACTIONS (4)
  - ABNORMAL DREAMS [None]
  - HEART RATE INCREASED [None]
  - TINNITUS [None]
  - WEIGHT INCREASED [None]
